FAERS Safety Report 4616564-9 (Version None)
Quarter: 2005Q2

REPORT INFORMATION
  Report Type: 
  Country: None (occurrence: None)
  Receive Date: 20050311
  Receipt Date: 20041203
  Transmission Date: 20051028
  Serious: No
  Sender: FDA-Public Use
  Company Number: 2004-00881

PATIENT
  Age: 85 Year
  Sex: Male
  Weight: 77.1 kg

DRUGS (1)
  1. VELCADE [Suspect]
     Indication: MULTIPLE MYELOMA
     Dates: start: 20030601

REACTIONS (2)
  - DIARRHOEA [None]
  - PLATELET COUNT DECREASED [None]
